FAERS Safety Report 5181023-4 (Version None)
Quarter: 2006Q4

REPORT INFORMATION
  Report Type: 
  Country: None (occurrence: None)
  Receive Date: 20061220
  Receipt Date: 20060825
  Transmission Date: 20070319
  Serious: Yes (Hospitalization)
  Sender: FDA-Public Use
  Company Number: US-ELI_LILLY_AND_COMPANY-US200609006191

PATIENT
  Age: 61 Year
  Sex: Female
  Weight: 78.004 kg

DRUGS (1)
  1. ZYPREXA [Suspect]
     Route: 065

REACTIONS (2)
  - CARDIAC DISORDER [None]
  - DIABETES MELLITUS [None]
